FAERS Safety Report 9838780 (Version 1)
Quarter: 2014Q1

REPORT INFORMATION
  Report Type: Spontaneous
  Country: US (occurrence: US)
  Receive Date: 20140123
  Receipt Date: 20140123
  Transmission Date: 20141002
  Serious: Yes (Death)
  Sender: FDA-Public Use
  Company Number: US-BAYER-2014-009592

PATIENT
  Age: 60 Year
  Sex: Female

DRUGS (1)
  1. ALKA-SELTZER ORIGINAL [Suspect]
     Indication: NASOPHARYNGITIS
     Dosage: 2 DF, PRN
     Route: 048

REACTIONS (2)
  - Myocardial infarction [Fatal]
  - Intentional drug misuse [None]
